FAERS Safety Report 5956898-9 (Version None)
Quarter: 2008Q4

REPORT INFORMATION
  Report Type: 
  Country: None (occurrence: None)
  Receive Date: 20081118
  Receipt Date: 20081113
  Transmission Date: 20090506
  Serious: Yes (Other)
  Sender: FDA-Public Use
  Company Number: CA-JNJFOC-20081102370

PATIENT
  Sex: Female

DRUGS (7)
  1. DURAGESIC-100 [Suspect]
     Indication: DRUG USE FOR UNKNOWN INDICATION
     Dosage: EVERY 48-62 HR
     Route: 062
  2. CLONAZEPAM [Concomitant]
  3. CLONAZEPAM [Concomitant]
     Indication: WITHDRAWAL SYNDROME
  4. CLONIDINE [Concomitant]
     Indication: WITHDRAWAL SYNDROME
  5. OXYCODONE HCL [Concomitant]
  6. BACLOFEN [Concomitant]
     Indication: ANALGESIA
  7. FENTANYL [Concomitant]

REACTIONS (3)
  - HEADACHE [None]
  - INAPPROPRIATE SCHEDULE OF DRUG ADMINISTRATION [None]
  - SUICIDAL IDEATION [None]
